FAERS Safety Report 20724551 (Version 22)
Quarter: 2023Q4

REPORT INFORMATION
  Report Type: Spontaneous
  Country: AU (occurrence: AU)
  Receive Date: 20220419
  Receipt Date: 20231220
  Transmission Date: 20240110
  Serious: Yes (Other)
  Sender: FDA-Public Use
  Company Number: AU-TASMAN PHARMA, INC.-2022TSM00058

PATIENT
  Age: 35 Year
  Sex: Male

DRUGS (36)
  1. CLOZAPINE [Suspect]
     Active Substance: CLOZAPINE
     Dosage: 600 MG
     Dates: start: 20100701, end: 20100721
  2. CLOZAPINE [Suspect]
     Active Substance: CLOZAPINE
     Dosage: 1050 MG
     Dates: start: 20230822, end: 20230918
  3. CLOZAPINE [Suspect]
     Active Substance: CLOZAPINE
     Dosage: 1050 MG
     Dates: start: 20231017
  4. VERSACLOZ [Suspect]
     Active Substance: CLOZAPINE
     Dosage: 950 MG
     Dates: start: 20220405, end: 20221017
  5. VERSACLOZ [Suspect]
     Active Substance: CLOZAPINE
     Dosage: 1000 MG
     Dates: start: 20221018, end: 20230109
  6. VERSACLOZ [Suspect]
     Active Substance: CLOZAPINE
     Dosage: 1050 MG
     Dates: start: 20230110, end: 20230821
  7. VERSACLOZ [Suspect]
     Active Substance: CLOZAPINE
     Dosage: 1050 MG
     Dates: start: 20230919, end: 20231016
  8. CLOZAPINE [Suspect]
     Active Substance: CLOZAPINE
     Dosage: 600 MG
     Dates: start: 20100722, end: 20101122
  9. CLOZAPINE [Suspect]
     Active Substance: CLOZAPINE
     Dosage: 550 MG
     Dates: start: 20101123, end: 20101222
  10. CLOZAPINE [Suspect]
     Active Substance: CLOZAPINE
     Dosage: 500 MG
     Dates: start: 20101223, end: 20110510
  11. CLOZAPINE [Suspect]
     Active Substance: CLOZAPINE
     Dosage: 200 MG
     Dates: start: 20111228, end: 20120528
  12. CLOZAPINE [Suspect]
     Active Substance: CLOZAPINE
     Dosage: 62.5 MG
     Dates: start: 20200701, end: 20200707
  13. CLOZAPINE [Suspect]
     Active Substance: CLOZAPINE
     Dosage: 137.5 MG
     Dates: start: 20200708, end: 20200709
  14. CLOZAPINE [Suspect]
     Active Substance: CLOZAPINE
     Dosage: 162.5 MG
     Dates: start: 20200710, end: 20200713
  15. CLOZAPINE [Suspect]
     Active Substance: CLOZAPINE
     Dosage: 187.5 MG
     Dates: start: 20200714, end: 20200720
  16. CLOZAPINE [Suspect]
     Active Substance: CLOZAPINE
     Dosage: 237.5 MG
     Dates: start: 20200721, end: 20200727
  17. CLOZAPINE [Suspect]
     Active Substance: CLOZAPINE
     Dosage: 287.5 MG
     Dates: start: 20200728, end: 20200730
  18. CLOZAPINE [Suspect]
     Active Substance: CLOZAPINE
     Dosage: 337.5 MG
     Dates: start: 20200731, end: 20200803
  19. CLOZAPINE [Suspect]
     Active Substance: CLOZAPINE
     Dosage: 362.5 MG
     Dates: start: 20200804, end: 20200810
  20. CLOZAPINE [Suspect]
     Active Substance: CLOZAPINE
     Dosage: 387.5 MG
     Dates: start: 20200811, end: 20200817
  21. CLOZAPINE [Suspect]
     Active Substance: CLOZAPINE
     Dosage: 462.5 MG
     Dates: start: 20200818, end: 20200824
  22. CLOZAPINE [Suspect]
     Active Substance: CLOZAPINE
     Dosage: 512.5 MG
     Dates: start: 20200825, end: 20200902
  23. CLOZAPINE [Suspect]
     Active Substance: CLOZAPINE
     Dosage: 562.5 MG
     Dates: start: 20200903, end: 20201026
  24. CLOZAPINE [Suspect]
     Active Substance: CLOZAPINE
     Dosage: 550 MG
     Dates: start: 20201027, end: 20201102
  25. CLOZAPINE [Suspect]
     Active Substance: CLOZAPINE
     Dosage: 600 MG
     Dates: start: 20201103, end: 20201207
  26. CLOZAPINE [Suspect]
     Active Substance: CLOZAPINE
     Dosage: 650 MG
     Dates: start: 20201208, end: 20210104
  27. CLOZAPINE [Suspect]
     Active Substance: CLOZAPINE
     Dosage: 700 MG
     Dates: start: 20020105, end: 20210201
  28. CLOZAPINE [Suspect]
     Active Substance: CLOZAPINE
     Dosage: 750 MG
     Dates: start: 20210202, end: 20210524
  29. CLOZAPINE [Suspect]
     Active Substance: CLOZAPINE
     Dosage: 800 MG
     Dates: start: 20210525, end: 20210816
  30. CLOZAPINE [Suspect]
     Active Substance: CLOZAPINE
     Dosage: 850 MG
     Dates: start: 20210817, end: 20220111
  31. CLOZAPINE [Suspect]
     Active Substance: CLOZAPINE
     Dosage: 950 MG
     Dates: start: 20220112, end: 20220404
  32. CLOZAPINE [Suspect]
     Active Substance: CLOZAPINE
     Dosage: 500 MG
     Dates: start: 20110511, end: 20110619
  33. CLOZAPINE [Suspect]
     Active Substance: CLOZAPINE
     Dosage: 12.5 MG
     Dates: start: 20111130, end: 20111209
  34. CLOZAPINE [Suspect]
     Active Substance: CLOZAPINE
     Dosage: 200 MG
     Dates: start: 20111210, end: 20111227
  35. CLOZAPINE [Suspect]
     Active Substance: CLOZAPINE
     Dosage: 200 MG
     Dates: start: 20120529, end: 20141230
  36. CLOZAPINE [Suspect]
     Active Substance: CLOZAPINE
     Dosage: 100 MG
     Dates: start: 20141231, end: 20150210

REACTIONS (11)
  - Biliary fistula [Unknown]
  - Hypothyroidism [Unknown]
  - Cardiomyopathy [Unknown]
  - Left ventricular dysfunction [Unknown]
  - Neutropenia [Not Recovered/Not Resolved]
  - Leukopenia [Not Recovered/Not Resolved]
  - Treatment noncompliance [Recovered/Resolved]
  - Electrocardiogram repolarisation abnormality [Unknown]
  - Neutrophil count decreased [Not Recovered/Not Resolved]
  - White blood cell count decreased [Not Recovered/Not Resolved]
  - Off label use [Not Recovered/Not Resolved]

NARRATIVE: CASE EVENT DATE: 20110601
